FAERS Safety Report 5930303-0 (Version None)
Quarter: 2008Q4

REPORT INFORMATION
  Report Type: 
  Country: None (occurrence: None)
  Receive Date: 20081024
  Receipt Date: 20081015
  Transmission Date: 20090506
  Serious: Yes (Other)
  Sender: FDA-Public Use
  Company Number: GB-MERCK-0806GBR00105

PATIENT
  Age: 60 Year
  Sex: Female
  Weight: 63 kg

DRUGS (6)
  1. FOSAMAX [Suspect]
     Indication: OSTEOPOROSIS
     Route: 048
     Dates: start: 20080512, end: 20080606
  2. FOSAMAX [Suspect]
     Route: 048
     Dates: start: 20080101, end: 20080101
  3. CALCIUM CARBONATE AND CHOLECALCIFEROL [Concomitant]
     Route: 065
     Dates: end: 20080512
  4. LEVOTHYROXINE SODIUM [Concomitant]
     Route: 065
     Dates: start: 20070114
  5. LISINOPRIL [Concomitant]
     Route: 065
     Dates: start: 20080508
  6. FOSAMAX [Concomitant]
     Route: 065
     Dates: end: 20080610

REACTIONS (2)
  - BACK PAIN [None]
  - MALAISE [None]
